FAERS Safety Report 13250959 (Version 1)
Quarter: 2017Q1

REPORT INFORMATION
  Report Type: Spontaneous
  Country: US (occurrence: US)
  Receive Date: 20170220
  Receipt Date: 20170220
  Transmission Date: 20170428
  Serious: No
  Sender: FDA-Public Use
  Company Number: US-TEVA-730989ACC

PATIENT
  Age: 5 Month
  Sex: Female
  Weight: 7 kg

DRUGS (1)
  1. AMOXICILLIN. [Suspect]
     Active Substance: AMOXICILLIN
     Dosage: DOSE STRENGTH:  400 MG/5 ML
     Route: 048
     Dates: start: 20170109

REACTIONS (2)
  - Swelling [Unknown]
  - Adverse event [Unknown]

NARRATIVE: CASE EVENT DATE: 20170112
